FAERS Safety Report 10172779 (Version 2)
Quarter: 2014Q4

REPORT INFORMATION
  Report Type: Spontaneous
  Country: US (occurrence: None)
  Receive Date: 20140513
  Receipt Date: 20141107
  Transmission Date: 20150528
  Serious: Yes (Other)
  Sender: FDA-Public Use
  Company Number: 2014-US-005266

PATIENT
  Sex: Female

DRUGS (1)
  1. XYREM [Suspect]
     Active Substance: SODIUM OXYBATE
     Indication: NARCOLEPSY
     Route: 048
     Dates: start: 201008, end: 2010

REACTIONS (12)
  - Caesarean section [None]
  - Endometriosis [None]
  - Overweight [None]
  - Goitre [None]
  - Thyroid neoplasm [None]
  - Pregnancy [None]
  - Endometriosis ablation [None]
  - Thyroidectomy [None]
  - Feeling abnormal [None]
  - Hysterectomy [None]
  - Fatigue [None]
  - Exposure during pregnancy [None]

NARRATIVE: CASE EVENT DATE: 2010
